FAERS Safety Report 19109469 (Version 1)
Quarter: 2021Q2

REPORT INFORMATION
  Report Type: Spontaneous
  Country: FR (occurrence: FR)
  Receive Date: 20210409
  Receipt Date: 20210409
  Transmission Date: 20210717
  Serious: Yes (Hospitalization)
  Sender: FDA-Public Use
  Company Number: FR-SUN PHARMACEUTICAL INDUSTRIES LTD-2021RR-290460

PATIENT
  Age: 49 Year
  Sex: Male

DRUGS (1)
  1. PAROXETINE. [Suspect]
     Active Substance: PAROXETINE
     Indication: DEPRESSION
     Dosage: 20 MILLIGRAM, DAILY
     Route: 048
     Dates: start: 2009, end: 20210312

REACTIONS (1)
  - Reversible cerebral vasoconstriction syndrome [Not Recovered/Not Resolved]

NARRATIVE: CASE EVENT DATE: 20210312
